FAERS Safety Report 8552243-3 (Version None)
Quarter: 2012Q3

REPORT INFORMATION
  Report Type: 
  Country: None (occurrence: None)
  Receive Date: 20120731
  Receipt Date: 20120720
  Transmission Date: 20120928
  Serious: Yes (Other)
  Sender: FDA-Public Use
  Company Number: CA-UCBSA-060087

PATIENT
  Age: 62 Year
  Sex: Female
  Weight: 81.6 kg

DRUGS (15)
  1. FOLIC ACID [Concomitant]
  2. PLAQUENIL [Concomitant]
     Indication: RHEUMATOID ARTHRITIS
     Route: 048
     Dates: start: 19950101
  3. CIMZIA [Suspect]
     Indication: RHEUMATOID ARTHRITIS
     Route: 058
     Dates: start: 20120418, end: 20120101
  4. AMOXIL [Concomitant]
     Dosage: UNKNOWN DOSE
     Dates: start: 20120601, end: 20120622
  5. ACTONEL [Concomitant]
  6. CELEBREX [Concomitant]
     Route: 048
  7. CILEXETIL [Concomitant]
     Indication: HYPERTENSION
     Dates: end: 20120303
  8. CIMZIA [Suspect]
     Route: 058
     Dates: start: 20120208, end: 20120307
  9. METHOTREXATE [Concomitant]
     Indication: RHEUMATOID ARTHRITIS
     Route: 048
     Dates: start: 19950101
  10. PREDNISONE TAB [Concomitant]
     Indication: RHEUMATOID ARTHRITIS
     Dosage: ON AND OFF
     Route: 048
     Dates: start: 20090101
  11. ATACAND HCT [Concomitant]
     Indication: HYPERTENSION
     Dates: start: 20120101
  12. HUMIRA [Concomitant]
     Indication: RHEUMATOID ARTHRITIS
     Route: 058
     Dates: start: 20110601, end: 20120125
  13. AZULFIDINE [Concomitant]
     Indication: RHEUMATOID ARTHRITIS
     Route: 048
     Dates: start: 19950101
  14. LEVOTHYROXINE SODIUM [Concomitant]
  15. RABAPRAZOLE [Concomitant]
     Indication: GASTRIC DISORDER

REACTIONS (3)
  - DENTAL CARIES [None]
  - HAEMORRHOIDS [None]
  - VULVOVAGINAL MYCOTIC INFECTION [None]
